FAERS Safety Report 9630211 (Version 1)
Quarter: 2013Q4

REPORT INFORMATION
  Report Type: Spontaneous
  Country: DE (occurrence: DE)
  Receive Date: 20131017
  Receipt Date: 20131017
  Transmission Date: 20140711
  Serious: Yes (Congenital Anomaly)
  Sender: FDA-Public Use
  Company Number: GXKR2013DE003260

PATIENT
  Sex: 0

DRUGS (4)
  1. LAMOTRIGINE [Suspect]
     Dosage: MATERNAL DOSE: 100 [MG/D ]. GW- 0-32.1
     Route: 064
  2. PAROXETINE [Suspect]
     Dosage: MATERNAL DOSE: 40 [MG/D ], GW. 0-32.1
     Route: 064
  3. CHLORPROTHIXENE [Concomitant]
     Dosage: MATERNAL DOSE: 60 [MG/D ], GW 0-6
     Route: 064
  4. FOLIO FORTE [Concomitant]
     Dosage: MATERNAL DOSE: 0.8 [MG/D ]GW 5.1 - 32.1
     Route: 064

REACTIONS (2)
  - Atrial septal defect [Unknown]
  - Ventricular septal defect [Unknown]
